FAERS Safety Report 20547527 (Version 1)
Quarter: 2022Q1

REPORT INFORMATION
  Report Type: Report from Study
  Country: US (occurrence: US)
  Receive Date: 20220303
  Receipt Date: 20220303
  Transmission Date: 20220424
  Serious: Yes (Hospitalization)
  Sender: FDA-Public Use
  Company Number: US-ABBVIE-22K-163-4298410-00

PATIENT
  Sex: Male

DRUGS (3)
  1. HUMIRA [Suspect]
     Active Substance: ADALIMUMAB
     Indication: Crohn^s disease
     Dosage: CITRATE FREE
     Route: 058
  2. PFIZER BIONTECH COVID-19 [Concomitant]
     Indication: COVID-19 immunisation
     Route: 030
  3. PFIZER BIONTECH COVID-19 [Concomitant]
     Dosage: BOOSTER
     Route: 030

REACTIONS (1)
  - Food poisoning [Unknown]
